FAERS Safety Report 14608474 (Version 1)
Quarter: 2018Q1

REPORT INFORMATION
  Report Type: Spontaneous
  Country: US (occurrence: US)
  Receive Date: 20180307
  Receipt Date: 20180307
  Transmission Date: 20180509
  Serious: No
  Sender: FDA-Public Use
  Company Number: US-009507513-1803USA002206

PATIENT
  Age: 30 Year
  Sex: Female
  Weight: 43.54 kg

DRUGS (2)
  1. NUVARING [Suspect]
     Active Substance: ETHINYL ESTRADIOL\ETONOGESTREL
     Indication: CONTRACEPTION
     Dosage: RING, 3 WEEKS IN 1 WEEK REMOVAL
     Route: 067
     Dates: start: 201711
  2. NUVARING [Suspect]
     Active Substance: ETHINYL ESTRADIOL\ETONOGESTREL
     Dosage: RING, 3 WEEKS IN 1 WEEK REMOVAL
     Route: 067
     Dates: start: 20180302, end: 20180304

REACTIONS (5)
  - Pelvic pain [Recovered/Resolved]
  - Back pain [Recovered/Resolved]
  - Discomfort [Unknown]
  - Pelvic pain [Recovered/Resolved]
  - Back pain [Recovered/Resolved]

NARRATIVE: CASE EVENT DATE: 201803
